FAERS Safety Report 6576547-9 (Version None)
Quarter: 2010Q1

REPORT INFORMATION
  Report Type: 
  Country: None (occurrence: None)
  Receive Date: 20100210
  Receipt Date: 20100201
  Transmission Date: 20100710
  Serious: Yes (Hospitalization, Other)
  Sender: FDA-Public Use
  Company Number: US-BAYER-201013012NA

PATIENT
  Age: 49 Year
  Sex: Female

DRUGS (3)
  1. YAZ [Suspect]
     Indication: DRUG USE FOR UNKNOWN INDICATION
     Dates: start: 20060101
  2. LISINOPRIL [Concomitant]
     Indication: DRUG USE FOR UNKNOWN INDICATION
     Dates: start: 20100101
  3. EPINEPHRINE [Concomitant]
     Indication: BLOOD PRESSURE DECREASED

REACTIONS (2)
  - HAEMORRHAGIC STROKE [None]
  - MYOCARDIAL INFARCTION [None]
